FAERS Safety Report 23160248 (Version 3)
Quarter: 2024Q1

REPORT INFORMATION
  Report Type: Spontaneous
  Country: JP (occurrence: JP)
  Receive Date: 20231108
  Receipt Date: 20240305
  Transmission Date: 20240410
  Serious: Yes (Other)
  Sender: FDA-Public Use
  Company Number: JP-VERICEL-JP-VCEL-23-000337

PATIENT
  Age: 78 Year
  Sex: Male
  Weight: 57.9 kg

DRUGS (12)
  1. BROMELAINS [Suspect]
     Active Substance: BROMELAINS
     Indication: Thermal burn
     Dosage: 5 GRAM
     Route: 061
     Dates: start: 20231018, end: 20231018
  2. BROMELAINS [Suspect]
     Active Substance: BROMELAINS
     Indication: Burns second degree
  3. BROMELAINS [Suspect]
     Active Substance: BROMELAINS
     Indication: Burns third degree
  4. PENTAZOCINE [Concomitant]
     Active Substance: PENTAZOCINE
     Indication: Pain management
     Dosage: 15 MILLIGRAM, Q12H
     Route: 042
     Dates: start: 20231018, end: 20231018
  5. ACETAMINOPHEN [Concomitant]
     Active Substance: ACETAMINOPHEN
     Indication: Pain management
     Dosage: 1000 MILLIGRAM, Q12H
     Route: 042
     Dates: start: 20231018, end: 20231018
  6. ACETAMINOPHEN [Concomitant]
     Active Substance: ACETAMINOPHEN
     Indication: Thermal burn
     Dosage: 500 MILLIGRAM, Q8H
     Route: 048
     Dates: start: 20231016, end: 20231030
  7. FAMOTIDINE [Concomitant]
     Active Substance: FAMOTIDINE
     Indication: Postoperative hypopituitarism
     Dosage: 20 MILLIGRAM, QD
     Route: 048
     Dates: start: 20231016, end: 20231030
  8. DIPHENIDOL HYDROCHLORIDE [Concomitant]
     Active Substance: DIPHENIDOL HYDROCHLORIDE
     Indication: Postoperative hypopituitarism
     Dosage: 75 MILLIGRAM, Q8H, CONTINUATION
     Route: 048
     Dates: start: 20231016, end: 20231030
  9. SILVER SULFADIAZINE [Concomitant]
     Active Substance: SILVER SULFADIAZINE
     Indication: Thermal burn
     Dosage: 20 GRAM, QD
     Route: 061
     Dates: start: 20231016, end: 20231030
  10. CORTRIL [Concomitant]
     Active Substance: HYDROCORTISONE
     Indication: Postoperative hypopituitarism
     Dosage: 20 MILLIGRAM, QD
     Route: 048
     Dates: start: 20231016, end: 20231020
  11. CORTRIL [Concomitant]
     Active Substance: HYDROCORTISONE
     Dosage: 20 MILLIGRAM, BID
     Route: 048
     Dates: start: 20231021, end: 20231030
  12. CEFAZOLIN SODIUM [Concomitant]
     Active Substance: CEFAZOLIN SODIUM
     Indication: Thermal burn
     Dosage: 1 GRAM, Q8H, CONTINUATION
     Route: 042
     Dates: start: 20231016, end: 20231030

REACTIONS (3)
  - Postoperative delirium [Recovered/Resolved]
  - Adrenal insufficiency [Recovered/Resolved]
  - Application site pain [Recovered/Resolved]

NARRATIVE: CASE EVENT DATE: 20231018
